FAERS Safety Report 4408239-6 (Version None)
Quarter: 2004Q3

REPORT INFORMATION
  Report Type: 
  Country: None (occurrence: None)
  Receive Date: 20040724
  Receipt Date: 20040724
  Transmission Date: 20050211
  Serious: No
  Sender: FDA-Public Use
  Company Number: None

PATIENT
  Sex: Male
  Weight: 122 kg

DRUGS (8)
  1. METHOTREXATE [Suspect]
     Indication: ARTHRITIS
     Dosage: 20MG  WEEKLY  ORAL
     Route: 048
     Dates: start: 20040421, end: 20040621
  2. METHOTREXATE [Suspect]
     Indication: RHEUMATOID ARTHRITIS
     Dosage: 20MG  WEEKLY  ORAL
     Route: 048
     Dates: start: 20040421, end: 20040621
  3. ALPROSTADIL [Concomitant]
  4. BUPROPION HCL [Concomitant]
  5. FOLIC ACID [Concomitant]
  6. LISINOPRIL [Concomitant]
  7. OMEPRAZOLE [Concomitant]
  8. SIMVASTATIN [Concomitant]

REACTIONS (4)
  - COUGH [None]
  - DYSPNOEA EXERTIONAL [None]
  - LIVER FUNCTION TEST ABNORMAL [None]
  - PNEUMONITIS [None]
